FAERS Safety Report 9605641 (Version 1)
Quarter: 2013Q4

REPORT INFORMATION
  Report Type: Spontaneous
  Country: US (occurrence: US)
  Receive Date: 20131008
  Receipt Date: 20131008
  Transmission Date: 20140711
  Serious: Yes (Other)
  Sender: FDA-Public Use
  Company Number: US-PFIZER INC-2013285692

PATIENT
  Age: 50 Year
  Sex: Male
  Weight: 113.38 kg

DRUGS (2)
  1. LYRICA [Suspect]
     Indication: NEUROPATHY PERIPHERAL
     Dosage: UNK
     Route: 048
     Dates: start: 2008
  2. CYMBALTA [Concomitant]
     Dosage: 5 YEARS AGO

REACTIONS (1)
  - Diabetes mellitus [Unknown]
